FAERS Safety Report 9377862 (Version 1)
Quarter: 2013Q3

REPORT INFORMATION
  Report Type: Spontaneous
  Country: US (occurrence: US)
  Receive Date: 20130701
  Receipt Date: 20130701
  Transmission Date: 20140515
  Serious: Yes (Other)
  Sender: FDA-Public Use
  Company Number: US-BAYER-2013-079782

PATIENT
  Age: 36 Year
  Sex: Female
  Weight: 79 kg

DRUGS (8)
  1. YASMIN [Suspect]
  2. QUININE SULFATE [Concomitant]
     Dosage: 325 MG, CAPSULES
  3. ACETAMINOPHEN [Concomitant]
     Dosage: 500 MG, TABLET
  4. IBUPROFEN [Concomitant]
     Dosage: 400 MG, TABLET
  5. HYDROCODONE W/APAP [Concomitant]
     Dosage: 5/500 TABLET
  6. CEPHALEXIN [Concomitant]
     Dosage: 500 MG, CAPSULE
  7. PREDNISONE [Concomitant]
     Dosage: 20 MG, TABLET
  8. ADVIL [Concomitant]

REACTIONS (3)
  - Cholecystitis acute [None]
  - Venous thrombosis limb [None]
  - Deep vein thrombosis [None]
